FAERS Safety Report 14515021 (Version 2)
Quarter: 2018Q3

REPORT INFORMATION
  Report Type: Spontaneous
  Country: DK (occurrence: DK)
  Receive Date: 20180209
  Receipt Date: 20180906
  Transmission Date: 20181010
  Serious: Yes (Disabling)
  Sender: FDA-Public Use
  Company Number: DK-CONCORDIA PHARMACEUTICALS INC.-E2B_00009793

PATIENT
  Age: 45 Year
  Sex: Female

DRUGS (9)
  1. CORODIL [Concomitant]
  2. SANDIMMUN NEORAL [Concomitant]
     Active Substance: CYCLOSPORINE
     Indication: RENAL TRANSPLANT
  3. FURIX [Concomitant]
     Active Substance: FUROSEMIDE
  4. SIMVASTATIN. [Concomitant]
     Active Substance: SIMVASTATIN
  5. PREDNISOLONE. [Suspect]
     Active Substance: PREDNISOLONE
     Indication: RENAL TRANSPLANT
     Dosage: DOSIS: 500 MG DAGLIGT, MED AFTRAPNING TIL 7.5 MG OG SENERE 5 MG
     Dates: start: 19991124, end: 20160729
  6. CELLCEPT [Concomitant]
     Active Substance: MYCOPHENOLATE MOFETIL\MYCOPHENOLATE MOFETIL HYDROCHLORIDE
  7. CARVEDILOL. [Concomitant]
     Active Substance: CARVEDILOL
  8. ETALPHA [Concomitant]
     Active Substance: ALFACALCIDOL
  9. SANDIMMUN [Concomitant]
     Active Substance: CYCLOSPORINE

REACTIONS (11)
  - Myopathy [Not Recovered/Not Resolved]
  - Bone fissure [Unknown]
  - Foot deformity [Not Recovered/Not Resolved]
  - Pain in extremity [Recovered/Resolved]
  - Osteoarthritis [Not Recovered/Not Resolved]
  - Muscular weakness [Not Recovered/Not Resolved]
  - Arthropathy [Not Recovered/Not Resolved]
  - Gait disturbance [Not Recovered/Not Resolved]
  - Muscular weakness [Not Recovered/Not Resolved]
  - Impaired work ability [Not Recovered/Not Resolved]
  - Myalgia [Unknown]

NARRATIVE: CASE EVENT DATE: 200711
